FAERS Safety Report 8632060 (Version 4)
Quarter: 2013Q3

REPORT INFORMATION
  Report Type: Report from Study
  Country: JP (occurrence: JP)
  Receive Date: 20120625
  Receipt Date: 20130920
  Transmission Date: 20140515
  Serious: Yes (Hospitalization, Other)
  Sender: FDA-Public Use
  Company Number: JP-JNJFOC-20120520031

PATIENT
  Age: 44 Year
  Sex: Male
  Weight: 71 kg

DRUGS (12)
  1. STELARA [Suspect]
     Indication: PSORIASIS
     Route: 058
     Dates: start: 20110909
  2. STELARA [Suspect]
     Indication: PSORIASIS
     Route: 058
     Dates: start: 20111202
  3. STELARA [Suspect]
     Indication: PSORIASIS
     Route: 058
     Dates: start: 20120302
  4. STELARA [Suspect]
     Indication: PSORIASIS
     Route: 058
     Dates: start: 20130205
  5. STELARA [Suspect]
     Indication: PSORIASIS
     Route: 058
     Dates: start: 20130613
  6. STELARA [Suspect]
     Indication: PSORIASIS
     Route: 058
     Dates: start: 20110812
  7. ALESION [Concomitant]
     Indication: PSORIASIS
     Route: 048
     Dates: start: 201007, end: 20120525
  8. CINAL [Concomitant]
     Indication: PSORIASIS
     Route: 048
     Dates: start: 201007, end: 20120525
  9. DIACORT [Concomitant]
     Indication: PSORIASIS
     Route: 061
     Dates: start: 201007
  10. DIACORT [Concomitant]
     Indication: PSORIASIS
     Route: 061
  11. OXAROL [Concomitant]
     Indication: PSORIASIS
     Route: 061
     Dates: start: 201007
  12. NEORAL [Concomitant]
     Indication: PSORIASIS
     Route: 058
     Dates: start: 20110812, end: 20110825

REACTIONS (2)
  - Acute hepatitis B [Recovered/Resolved]
  - Hepatic function abnormal [Recovered/Resolved]
